FAERS Safety Report 12476739 (Version 4)
Quarter: 2016Q3

REPORT INFORMATION
  Report Type: Spontaneous
  Country: CN (occurrence: CN)
  Receive Date: 20160617
  Receipt Date: 20160711
  Transmission Date: 20161109
  Serious: Yes (Other)
  Sender: FDA-Public Use
  Company Number: ALCN2016CN004151

PATIENT
  Age: 56 Year
  Sex: Male

DRUGS (8)
  1. AMIKACIN [Concomitant]
     Active Substance: AMIKACIN
     Indication: NOCARDIOSIS
     Dosage: 1 GTT, Q2H
     Route: 047
  2. NATACYN [Suspect]
     Active Substance: NATAMYCIN
     Indication: KERATITIS FUNGAL
     Dosage: 1 GTT, QID
     Route: 047
  3. LEVOFLOXACIN. [Concomitant]
     Active Substance: LEVOFLOXACIN
     Dosage: UNK
     Route: 048
  4. CYCLOSPORINE. [Concomitant]
     Active Substance: CYCLOSPORINE
     Dosage: UNK
     Route: 048
  5. METRONIDAZOL//METRONIDAZOLE [Concomitant]
     Indication: NOCARDIOSIS
     Dosage: 1 GTT, Q2H
     Route: 047
  6. TOBREX [Suspect]
     Active Substance: TOBRAMYCIN
     Indication: KERATITIS BACTERIAL
     Dosage: 1 GTT, QH
     Route: 047
  7. LEVOFLOXACIN. [Concomitant]
     Active Substance: LEVOFLOXACIN
     Indication: POSTOPERATIVE CARE
     Dosage: 1 GTT, QH
     Route: 047
  8. CYCLOSPORINE. [Concomitant]
     Active Substance: CYCLOSPORINE
     Indication: POSTOPERATIVE CARE
     Dosage: 1 GTT, QID
     Route: 047

REACTIONS (5)
  - Conjunctival hyperaemia [Recovered/Resolved]
  - Drug ineffective [Recovered/Resolved]
  - Anterior chamber inflammation [Recovered/Resolved]
  - Visual acuity reduced [Recovered/Resolved]
  - Corneal opacity [Recovered/Resolved]
